FAERS Safety Report 8328165-X (Version None)
Quarter: 2012Q2

REPORT INFORMATION
  Report Type: 
  Country: None (occurrence: None)
  Receive Date: 20120502
  Receipt Date: 20120427
  Transmission Date: 20120825
  Serious: Yes (Death, Hospitalization)
  Sender: FDA-Public Use
  Company Number: PHHY2012MX036884

PATIENT
  Sex: Female

DRUGS (1)
  1. STALEVO 100 [Suspect]
     Dosage: 200 MG/150 MG/37.5 MG, 2 TABLETS DAILY
     Dates: start: 20080101

REACTIONS (4)
  - ABDOMINAL PAIN UPPER [None]
  - GAIT DISTURBANCE [None]
  - FALL [None]
  - MYOCARDIAL INFARCTION [None]
